FAERS Safety Report 7234842-4 (Version None)
Quarter: 2011Q1

REPORT INFORMATION
  Report Type: 
  Country: None (occurrence: None)
  Receive Date: 20110114
  Receipt Date: 20110114
  Transmission Date: 20110831
  Serious: Yes (Hospitalization)
  Sender: FDA-Public Use
  Company Number: None

PATIENT
  Age: 89 Year
  Sex: Male

DRUGS (2)
  1. WARFARIN SODIUM [Suspect]
     Indication: ATRIAL FIBRILLATION
     Dosage: VARIOUS PENDING INR QDAY PO
     Route: 048
     Dates: end: 20101230
  2. WARFARIN SODIUM [Suspect]
     Indication: MITRAL VALVE INCOMPETENCE
     Dosage: VARIOUS PENDING INR QDAY PO
     Route: 048
     Dates: end: 20101230

REACTIONS (2)
  - ANAEMIA [None]
  - MALLORY-WEISS SYNDROME [None]
